FAERS Safety Report 12222936 (Version 1)
Quarter: 2016Q1

REPORT INFORMATION
  Report Type: Spontaneous
  Country: US (occurrence: US)
  Receive Date: 20160330
  Receipt Date: 20160330
  Transmission Date: 20160526
  Serious: No
  Sender: FDA-Public Use
  Company Number: US-PERRIGO-15US007030

PATIENT
  Age: 50 Year
  Sex: Male
  Weight: 77.98 kg

DRUGS (1)
  1. ACETAMINOPHEN. [Suspect]
     Active Substance: ACETAMINOPHEN
     Indication: HEADACHE
     Dosage: 650 MG, SINGLE
     Route: 048
     Dates: start: 20150703, end: 20150703

REACTIONS (3)
  - Underdose [Recovered/Resolved]
  - No adverse event [Recovered/Resolved]
  - Expired product administered [Recovered/Resolved]

NARRATIVE: CASE EVENT DATE: 20150703
